FAERS Safety Report 5930515-6 (Version None)
Quarter: 2008Q4

REPORT INFORMATION
  Report Type: 
  Country: None (occurrence: None)
  Receive Date: 20081026
  Receipt Date: 20081017
  Transmission Date: 20090506
  Serious: Yes (Other)
  Sender: FDA-Public Use
  Company Number: PHHY2008JP22408

PATIENT
  Sex: Male
  Weight: 74 kg

DRUGS (7)
  1. TOFRANIL [Suspect]
     Indication: BENIGN PROSTATIC HYPERPLASIA
     Dosage: 100 MG DAILY
     Route: 048
  2. TOFRANIL [Interacting]
     Indication: POLLAKIURIA
  3. METHYLDOPA [Interacting]
     Indication: HYPERTENSION
     Route: 048
  4. CASODEX [Concomitant]
     Indication: BENIGN PROSTATIC HYPERPLASIA
  5. VESICARE [Concomitant]
     Indication: BENIGN PROSTATIC HYPERPLASIA
     Dosage: 10 MG
  6. ALDOMET [Concomitant]
     Indication: DEMENTIA
     Dosage: 500 MG
     Route: 048
  7. ANAESTHETICS [Concomitant]

REACTIONS (3)
  - BLOOD PRESSURE DECREASED [None]
  - DRUG INTERACTION [None]
  - SURGERY [None]
